FAERS Safety Report 5904147 (Version 3)
Quarter: 2020Q3

REPORT INFORMATION
  Report Type: Report from Study
  Country: ES (occurrence: ES)
  Receive Date: 20051019
  Receipt Date: 20060331
  Transmission Date: 20201104
  Serious: Yes (Death, Life-Threatening, Hospitalization)
  Sender: FDA-Public Use
  Company Number: ES-JNJFOC-20050301582

PATIENT
  Age: 80 Year
  Sex: Female

DRUGS (6)
  1. REOPRO [Suspect]
     Active Substance: ABCIXIMAB
     Route: 042
  2. INSULIN NOS [Concomitant]
     Active Substance: INSULIN NOS
     Dosage: AS NEEDED
     Route: 058
  3. FUROSEMIDE. [Concomitant]
     Active Substance: FUROSEMIDE
     Route: 048
  4. REOPRO [Suspect]
     Active Substance: ABCIXIMAB
     Route: 042
  5. DIGOXIN. [Concomitant]
     Active Substance: DIGOXIN
     Route: 048
  6. LABETALOL [Concomitant]
     Active Substance: LABETALOL\LABETALOL HYDROCHLORIDE
     Route: 042

REACTIONS (2)
  - Subarachnoid haemorrhage [None]
  - Haemorrhagic transformation stroke [Fatal]

NARRATIVE: CASE EVENT DATE: 20050306
